FAERS Safety Report 9110400 (Version 1)
Quarter: 2013Q1

REPORT INFORMATION
  Report Type: Spontaneous
  Country: US (occurrence: US)
  Receive Date: 20130219
  Receipt Date: 20130219
  Transmission Date: 20140127
  Serious: No
  Sender: FDA-Public Use
  Company Number: US-BRISTOL-MYERS SQUIBB COMPANY-16583858

PATIENT
  Age: 57 Year
  Sex: Female

DRUGS (5)
  1. ORENCIA [Suspect]
     Indication: RHEUMATOID ARTHRITIS
     Route: 042
     Dates: start: 2012
  2. FLEXERIL [Concomitant]
  3. TRAMADOL [Concomitant]
  4. AMITRIPTYLINE [Concomitant]
  5. PREDNISONE [Concomitant]

REACTIONS (2)
  - Respiratory tract congestion [Unknown]
  - Headache [Unknown]
